FAERS Safety Report 4296405-2 (Version None)
Quarter: 2004Q1

REPORT INFORMATION
  Report Type: 
  Country: None (occurrence: None)
  Receive Date: 20040213
  Receipt Date: 20040213
  Transmission Date: 20041129
  Serious: Yes (Disabling)
  Sender: FDA-Public Use
  Company Number: None

PATIENT
  Age: 41 Year
  Sex: Female
  Weight: 83.9154 kg

DRUGS (2)
  1. PAXIL [Suspect]
     Indication: ANXIETY
     Dosage: 20,30, 1 DAILY ORAL
     Route: 048
     Dates: start: 20010901, end: 20040115
  2. PAXIL [Suspect]
     Indication: DEPRESSION
     Dosage: 20,30, 1 DAILY ORAL
     Route: 048
     Dates: start: 20010901, end: 20040115

REACTIONS (7)
  - CARDIAC DISORDER [None]
  - DIZZINESS [None]
  - FEELING ABNORMAL [None]
  - HEADACHE [None]
  - INFLUENZA LIKE ILLNESS [None]
  - NAUSEA [None]
  - VERTIGO [None]
